FAERS Safety Report 19168062 (Version 1)
Quarter: 2021Q2

REPORT INFORMATION
  Report Type: Spontaneous
  Country: US (occurrence: US)
  Receive Date: 20210422
  Receipt Date: 20210422
  Transmission Date: 20210717
  Serious: Yes (Hospitalization)
  Sender: FDA-Public Use
  Company Number: US-MYLANLABS-2021M1023205

PATIENT
  Age: 48 Year
  Sex: Male

DRUGS (2)
  1. GEMCITABINE. [Suspect]
     Active Substance: GEMCITABINE
     Indication: PANCREATIC CARCINOMA
     Route: 065
  2. DOCETAXEL. [Suspect]
     Active Substance: DOCETAXEL
     Indication: PANCREATIC CARCINOMA
     Route: 065

REACTIONS (3)
  - Candida infection [Recovered/Resolved]
  - Cholangitis infective [Recovered/Resolved]
  - Device occlusion [Recovered/Resolved]
